FAERS Safety Report 5951084-0 (Version None)
Quarter: 2008Q4

REPORT INFORMATION
  Report Type: 
  Country: None (occurrence: None)
  Receive Date: 20081111
  Receipt Date: 20081111
  Transmission Date: 20090506
  Serious: Yes (Other)
  Sender: FDA-Public Use
  Company Number: None

PATIENT
  Sex: Male
  Weight: 73.4827 kg

DRUGS (3)
  1. LAMICTAL [Suspect]
     Indication: CONVULSION
     Dosage: 300 MG TWICE/DAY PO
     Route: 048
     Dates: start: 20080802
  2. KEPPRA [Concomitant]
  3. VNS [Concomitant]

REACTIONS (5)
  - CONVULSION [None]
  - DYSKINESIA [None]
  - LABORATORY TEST ABNORMAL [None]
  - STARING [None]
  - THERAPEUTIC RESPONSE UNEXPECTED WITH DRUG SUBSTITUTION [None]
